FAERS Safety Report 26099251 (Version 2)
Quarter: 2025Q4

REPORT INFORMATION
  Report Type: Report from Study
  Country: US (occurrence: US)
  Receive Date: 20251128
  Receipt Date: 20251229
  Transmission Date: 20260118
  Serious: Yes (Other)
  Sender: GLAXOSMITHKLINE
  Company Number: US-GLAXOSMITHKLINE INC-US2025151450

PATIENT
  Age: 60 Year
  Sex: Female

DRUGS (1)
  1. BELIMUMAB [Suspect]
     Active Substance: BELIMUMAB
     Indication: Product used for unknown indication
     Dosage: UNK

REACTIONS (6)
  - Limb operation [Unknown]
  - Procedural pain [Unknown]
  - Malaise [Unknown]
  - Illness [Unknown]
  - Product dose omission issue [Unknown]
  - Product administration error [Unknown]

NARRATIVE: CASE EVENT DATE: 20250501
